FAERS Safety Report 17956245 (Version 1)
Quarter: 2020Q2

REPORT INFORMATION
  Report Type: Spontaneous
  Country: IT (occurrence: IT)
  Receive Date: 20200629
  Receipt Date: 20200629
  Transmission Date: 20200714
  Serious: Yes (Hospitalization)
  Sender: FDA-Public Use
  Company Number: IT-SUN PHARMACEUTICAL INDUSTRIES LTD-2020RR-251717

PATIENT
  Age: 55 Year
  Sex: Female

DRUGS (4)
  1. FELDENE [Suspect]
     Active Substance: PIROXICAM
     Indication: LIGAMENT SPRAIN
     Dosage: ()
     Route: 048
     Dates: start: 20200517, end: 20200518
  2. TACHIPIRINA 1000 MG COMPRESSE [Suspect]
     Active Substance: ACETAMINOPHEN
     Indication: LIGAMENT SPRAIN
     Dosage: ()
     Route: 048
     Dates: start: 20200517, end: 20200518
  3. OMEPRAZOLE. [Suspect]
     Active Substance: OMEPRAZOLE
     Indication: PRODUCT USED FOR UNKNOWN INDICATION
     Dosage: ()
     Route: 048
     Dates: start: 20200517, end: 20200518
  4. EXPOSE 100 MG COMPRESSE RIVESTITE CON FILM [Suspect]
     Active Substance: EPERISONE HYDROCHLORIDE
     Indication: LIGAMENT SPRAIN
     Dosage: ()
     Route: 048
     Dates: start: 20200517, end: 20200518

REACTIONS (2)
  - Rash [Recovered/Resolved]
  - Pruritus [Recovered/Resolved]

NARRATIVE: CASE EVENT DATE: 20200518
